FAERS Safety Report 8328718-9 (Version None)
Quarter: 2012Q2

REPORT INFORMATION
  Report Type: 
  Country: None (occurrence: None)
  Receive Date: 20120502
  Receipt Date: 20101018
  Transmission Date: 20120825
  Serious: Yes (Other)
  Sender: FDA-Public Use
  Company Number: US-TEVA-2010004491

PATIENT
  Sex: Female
  Weight: 89.892 kg

DRUGS (7)
  1. AMOXICILLIN [Concomitant]
     Dates: start: 20100801
  2. MARAPEX [Concomitant]
     Dates: start: 20090101
  3. NUVIGIL [Suspect]
     Route: 048
     Dates: start: 20100819
  4. CYMBALTA [Concomitant]
     Dates: start: 20050101
  5. NUVIGIL [Suspect]
     Indication: NARCOLEPSY
     Dosage: 300 MILLIGRAM;
     Route: 048
     Dates: start: 20100718, end: 20100721
  6. NUVIGIL [Suspect]
     Dosage: 250 MILLIGRAM;
     Route: 048
     Dates: start: 20100721, end: 20100810
  7. LISINOPRIL [Concomitant]

REACTIONS (2)
  - SUICIDAL IDEATION [None]
  - CRYING [None]
